FAERS Safety Report 25078569 (Version 1)
Quarter: 2025Q1

REPORT INFORMATION
  Report Type: Spontaneous
  Country: US (occurrence: None)
  Receive Date: 20250314
  Receipt Date: 20250314
  Transmission Date: 20250408
  Serious: Yes (Hospitalization)
  Sender: FDA-CTU
  Company Number: None

PATIENT
  Age: 20 Year
  Sex: Male
  Weight: 74.1 kg

DRUGS (10)
  1. CYCLOPHOSPHAMIDE [Suspect]
     Active Substance: CYCLOPHOSPHAMIDE
     Dates: end: 20250216
  2. DOXORUBICIN HYDROCHLORIDE [Suspect]
     Active Substance: DOXORUBICIN HYDROCHLORIDE
     Dates: end: 20250216
  3. ETOPOSIDE [Suspect]
     Active Substance: ETOPOSIDE
     Dates: end: 20250216
  4. PREDNISONE [Suspect]
     Active Substance: PREDNISONE
     Dates: end: 20250216
  5. RITUXIMAB [Suspect]
     Active Substance: RITUXIMAB
     Dates: end: 20250212
  6. VINCRISTINE SULFATE [Suspect]
     Active Substance: VINCRISTINE SULFATE
     Dates: end: 20250216
  7. chlorhexidine (peridex) [Concomitant]
  8. phenazopyridine (pyridium) [Concomitant]
  9. BACTRIM [Concomitant]
     Active Substance: SULFAMETHOXAZOLE\TRIMETHOPRIM
  10. valacyclovir (valtrex) [Concomitant]

REACTIONS (1)
  - Cystitis viral [None]

NARRATIVE: CASE EVENT DATE: 20250224
